FAERS Safety Report 5729203-0 (Version None)
Quarter: 2008Q2

REPORT INFORMATION
  Report Type: 
  Country: None (occurrence: None)
  Receive Date: 20080506
  Receipt Date: 20080428
  Transmission Date: 20081010
  Serious: Yes (Congenital Anomaly, Other)
  Sender: FDA-Public Use
  Company Number: EE-AVENTIS-200813876GDDC

PATIENT
  Age: 0 Month
  Sex: Female
  Weight: 1.98 kg

DRUGS (1)
  1. LANTUS [Suspect]
     Route: 064
     Dates: start: 20080219, end: 20080317

REACTIONS (3)
  - DRUG EXPOSURE DURING PREGNANCY [None]
  - HYDROCEPHALUS [None]
  - HYPERBILIRUBINAEMIA NEONATAL [None]
